FAERS Safety Report 4953914-8 (Version None)
Quarter: 2006Q1

REPORT INFORMATION
  Report Type: 
  Country: None (occurrence: None)
  Receive Date: 20060322
  Receipt Date: 20060307
  Transmission Date: 20060701
  Serious: Yes (Hospitalization)
  Sender: FDA-Public Use
  Company Number: DE200603001653

PATIENT
  Sex: Male

DRUGS (4)
  1. ZYPREXA [Suspect]
     Dosage: 5 MG, ORAL
     Route: 048
  2. CARBAMAZEPINE [Concomitant]
  3. CIATYL-Z (ZUCLOPENTHIXOL HYDROCHLORIDE) [Concomitant]
  4. LAMOTRIGINE [Concomitant]

REACTIONS (4)
  - ARRHYTHMIA [None]
  - BRADYCARDIA [None]
  - CONVULSION [None]
  - HYPOTHERMIA [None]
